FAERS Safety Report 8793263 (Version 6)
Quarter: 2014Q1

REPORT INFORMATION
  Report Type: Report from Study
  Country: FR (occurrence: FR)
  Receive Date: 20120918
  Receipt Date: 20140211
  Transmission Date: 20141002
  Serious: Yes (Hospitalization)
  Sender: FDA-Public Use
  Company Number: FR-TEVA-358952USA

PATIENT
  Age: 82 Year
  Sex: Female
  Weight: 52 kg

DRUGS (14)
  1. TREANDA [Suspect]
     Indication: MANTLE CELL LYMPHOMA
     Route: 041
     Dates: start: 20120625, end: 20120822
  2. TREANDA [Suspect]
     Dosage: REGIMEN #2
     Dates: start: 20121001
  3. VELCADE [Suspect]
     Indication: MANTLE CELL LYMPHOMA
     Dosage: UID/QD
     Route: 042
     Dates: start: 20120625, end: 20120828
  4. VELCADE [Suspect]
     Dosage: REGIMEN #2
     Dates: start: 20121001
  5. MABTHERA [Suspect]
     Indication: MANTLE CELL LYMPHOMA
     Route: 041
     Dates: start: 20120625, end: 20120821
  6. MABTHERA [Suspect]
     Dosage: REGIMEN #2
     Dates: start: 20121001
  7. DEXAMETHASONE [Suspect]
     Indication: MANTLE CELL LYMPHOMA
     Route: 058
     Dates: start: 20120626, end: 20120822
  8. DEXAMETHASONE [Suspect]
     Dosage: REGIMEN #2
     Dates: start: 20121002
  9. RAMIPRIL [Concomitant]
  10. AMLOR [Concomitant]
  11. NAFTILUX [Concomitant]
  12. CRESTOR [Concomitant]
  13. CLOPIDOGREL [Concomitant]
  14. ACTONEL [Concomitant]

REACTIONS (1)
  - Orthostatic hypotension [Recovered/Resolved]
